APPROVED DRUG PRODUCT: MOXIFLOXACIN HYDROCHLORIDE
Active Ingredient: MOXIFLOXACIN HYDROCHLORIDE
Strength: EQ 400MG BASE
Dosage Form/Route: TABLET;ORAL
Application: A076938 | Product #001 | TE Code: AB
Applicant: DR REDDYS LABORATORIES LTD
Approved: Mar 4, 2014 | RLD: No | RS: Yes | Type: RX